FAERS Safety Report 8822321 (Version 2)
Quarter: 2013Q4

REPORT INFORMATION
  Report Type: Report from Study
  Country: JP (occurrence: JP)
  Receive Date: 20121003
  Receipt Date: 20131003
  Transmission Date: 20140711
  Serious: Yes (Hospitalization, Disabling, Other)
  Sender: FDA-Public Use
  Company Number: PHHY2012JP012308

PATIENT
  Age: 80 Year
  Sex: 0

DRUGS (18)
  1. AMN107 [Suspect]
     Indication: CHRONIC MYELOID LEUKAEMIA
     Dosage: 400 MG, BID
     Route: 048
     Dates: start: 20090623, end: 20090701
  2. AMN107 [Suspect]
     Dosage: 1600 MG, UNK
     Route: 048
     Dates: start: 20090707, end: 20090709
  3. AMN107 [Suspect]
     Dosage: 800 MG,
     Dates: start: 20090710, end: 20120715
  4. PARIET [Concomitant]
     Dosage: 10 MG,
     Route: 048
  5. PARIET [Concomitant]
     Dosage: 10 MG,
     Route: 048
  6. PARIET [Concomitant]
     Dosage: 20 MG,
     Route: 048
  7. PARIET [Concomitant]
     Dosage: 10 MG,
     Route: 048
  8. MUCOSTA [Concomitant]
     Dosage: 200 MG,
     Route: 048
  9. MUCOSTA [Concomitant]
     Dosage: 200 MG,
     Route: 048
  10. MUCOSTA [Concomitant]
     Dosage: 400 MG,
     Route: 048
  11. MUCOSTA [Concomitant]
     Dosage: 200 MG,
     Route: 048
  12. FUROSEMIDE [Concomitant]
     Dosage: 10 MG,
     Route: 048
  13. FUROSEMIDE [Concomitant]
     Dosage: 10 MG,
     Route: 048
  14. FUROSEMIDE [Concomitant]
     Dosage: 20 MG,
     Route: 048
  15. FUROSEMIDE [Concomitant]
     Dosage: 10 MG,
     Route: 048
  16. MAGMITT [Concomitant]
     Dosage: 990 MG, UNK
     Route: 048
     Dates: start: 20100405, end: 20100524
  17. PLETAAL [Concomitant]
     Dosage: 200 MG, DAILY
     Route: 048
  18. REBAMIPIDE [Concomitant]
     Indication: PROPHYLAXIS
     Dosage: 200 MG, UNK
     Route: 048

REACTIONS (4)
  - Cerebral infarction [Recovered/Resolved with Sequelae]
  - Speech disorder developmental [Not Recovered/Not Resolved]
  - Hemiplegia [Not Recovered/Not Resolved]
  - Dysarthria [Not Recovered/Not Resolved]
